FAERS Safety Report 20773449 (Version 1)
Quarter: 2022Q2

REPORT INFORMATION
  Report Type: Spontaneous
  Country: US (occurrence: None)
  Receive Date: 20220430
  Receipt Date: 20220430
  Transmission Date: 20220721
  Serious: Yes (Hospitalization)
  Sender: FDA-Public Use
  Company Number: None

PATIENT
  Age: 51 Year
  Sex: Female
  Weight: 56.2 kg

DRUGS (1)
  1. ASPIRIN [Suspect]
     Active Substance: ASPIRIN
     Dates: end: 20211201

REACTIONS (5)
  - Arthralgia [None]
  - Thrombocytopenia [None]
  - White blood cell count increased [None]
  - T-cell type acute leukaemia [None]
  - Blast cell count increased [None]

NARRATIVE: CASE EVENT DATE: 20220416
